FAERS Safety Report 16385381 (Version 5)
Quarter: 2019Q3

REPORT INFORMATION
  Report Type: Report from Study
  Country: JP (occurrence: JP)
  Receive Date: 20190603
  Receipt Date: 20190729
  Transmission Date: 20191004
  Serious: Yes (Hospitalization)
  Sender: FDA-Public Use
  Company Number: JP-EISAI MEDICAL RESEARCH-EC-2019-057160

PATIENT
  Age: 45 Year
  Sex: Male
  Weight: 57 kg

DRUGS (12)
  1. CALONAL [Concomitant]
     Active Substance: ACETAMINOPHEN
  2. HEMOPORISON [Concomitant]
  3. VOLTAREN [Concomitant]
     Active Substance: DICLOFENAC SODIUM
  4. CHLOMY-P [Concomitant]
  5. ERIBULIN [Suspect]
     Active Substance: ERIBULIN
     Indication: COLON CANCER
     Dosage: 2.3MG/DAY
     Route: 041
     Dates: start: 20190516, end: 20190523
  6. REBAMIPIDE [Concomitant]
     Active Substance: REBAMIPIDE
  7. URSODEOXYCHOLIC ACID [Concomitant]
     Active Substance: URSODIOL
  8. CIPROXAN [Concomitant]
     Active Substance: CIPROFLOXACIN
  9. LANSOPRAZOLE. [Concomitant]
     Active Substance: LANSOPRAZOLE
  10. MAGNESIUM OXIDE. [Concomitant]
     Active Substance: MAGNESIUM OXIDE
  11. ERIBULIN [Suspect]
     Active Substance: ERIBULIN
     Dosage: 1.8MG/DAY
     Route: 041
     Dates: start: 20190617, end: 20190617
  12. MOHRUS TAPE [Concomitant]
     Active Substance: KETOPROFEN

REACTIONS (2)
  - Jaundice cholestatic [Recovering/Resolving]
  - Oropharyngeal pain [Recovered/Resolved]

NARRATIVE: CASE EVENT DATE: 20190523
